FAERS Safety Report 9827780 (Version 1)
Quarter: 2013Q4

REPORT INFORMATION
  Report Type: Spontaneous
  Country: US (occurrence: None)
  Receive Date: 20131223
  Receipt Date: 20131223
  Transmission Date: 20140711
  Serious: No
  Sender: FDA-Public Use
  Company Number: 218098LEO

PATIENT
  Age: 59 Year
  Sex: Female

DRUGS (1)
  1. PICATO [Suspect]
     Indication: ACTINIC KERATOSIS
     Route: 061
     Dates: start: 20120611, end: 20120613

REACTIONS (5)
  - Application site pain [None]
  - Application site burn [None]
  - Off label use [None]
  - Drug administration error [None]
  - Inappropriate schedule of drug administration [None]
